FAERS Safety Report 12068742 (Version 1)
Quarter: 2016Q1

REPORT INFORMATION
  Report Type: Spontaneous
  Country: US (occurrence: US)
  Receive Date: 20160211
  Receipt Date: 20160211
  Transmission Date: 20160526
  Serious: No
  Sender: FDA-Public Use
  Company Number: US-PAR PHARMACEUTICAL, INC-2015SCPR014461

PATIENT

DRUGS (2)
  1. LAMOTRIGINE. [Suspect]
     Active Substance: LAMOTRIGINE
     Indication: SEIZURE
     Dosage: 4 DF, / DAY, TWO TABLETS IN THE MORNING AND TWO TABLETS IN THE NIGHT
     Route: 048
     Dates: start: 20151030, end: 20151101
  2. VIMPAT [Concomitant]
     Active Substance: LACOSAMIDE
     Indication: SEIZURE
     Dosage: 1 DF, BID
     Route: 048

REACTIONS (4)
  - Mobility decreased [Recovered/Resolved]
  - Product substitution issue [Unknown]
  - Nausea [Recovered/Resolved]
  - Product quality issue [Unknown]

NARRATIVE: CASE EVENT DATE: 20151030
